FAERS Safety Report 17136050 (Version 3)
Quarter: 2019Q4

REPORT INFORMATION
  Report Type: Spontaneous
  Country: US (occurrence: US)
  Receive Date: 20191210
  Receipt Date: 20191212
  Transmission Date: 20200122
  Serious: Yes (Other)
  Sender: FDA-Public Use
  Company Number: US-JNJFOC-20191106233

PATIENT
  Age: 21 Year
  Sex: Female

DRUGS (2)
  1. SPRAVATO [Suspect]
     Active Substance: ESKETAMINE
     Indication: DEPRESSION
     Dates: start: 20191031
  2. SPRAVATO [Suspect]
     Active Substance: ESKETAMINE
     Dates: start: 2019

REACTIONS (23)
  - Hypoaesthesia [Recovered/Resolved]
  - Dissociative disorder [Recovered/Resolved]
  - Sedation [Recovered/Resolved]
  - Syncope [Unknown]
  - Psychotic disorder [Recovered/Resolved]
  - Upper-airway cough syndrome [Recovered/Resolved]
  - Abnormal behaviour [Recovered/Resolved]
  - Feeling drunk [Recovered/Resolved]
  - Photophobia [Recovered/Resolved]
  - Dissociation [Recovered/Resolved]
  - Thinking abnormal [Recovered/Resolved]
  - Illusion [Recovered/Resolved]
  - Abnormal behaviour [Recovered/Resolved]
  - Taste disorder [Recovered/Resolved]
  - Gait disturbance [Recovered/Resolved]
  - Dental dysaesthesia [Recovered/Resolved]
  - Dysgeusia [Recovered/Resolved]
  - Delusion [Recovered/Resolved]
  - Homicidal ideation [Recovered/Resolved]
  - Poor quality product administered [Unknown]
  - Hyperaesthesia [Recovered/Resolved]
  - Muscle twitching [Recovered/Resolved]
  - Product storage error [Unknown]

NARRATIVE: CASE EVENT DATE: 2019
